FAERS Safety Report 14332551 (Version 1)
Quarter: 2017Q4

REPORT INFORMATION
  Report Type: Spontaneous
  Country: US (occurrence: US)
  Receive Date: 20171227
  Receipt Date: 20171227
  Transmission Date: 20180321
  Serious: Yes (Other)
  Sender: FDA-Public Use
  Company Number: None

PATIENT
  Age: 53 Year
  Sex: Female

DRUGS (1)
  1. ENBREL [Suspect]
     Active Substance: ETANERCEPT

REACTIONS (5)
  - Blood pressure decreased [None]
  - Injection site bruising [None]
  - Pyrexia [None]
  - Rash [None]
  - Injection site erythema [None]

NARRATIVE: CASE EVENT DATE: 20171122
